FAERS Safety Report 9907582 (Version 1)
Quarter: 2014Q1

REPORT INFORMATION
  Report Type: Report from Study
  Country: US (occurrence: US)
  Receive Date: 20140218
  Receipt Date: 20140218
  Transmission Date: 20141002
  Serious: Yes (Other)
  Sender: FDA-Public Use
  Company Number: US-ROCHE-1346794

PATIENT
  Age: 38 Year
  Sex: Female

DRUGS (10)
  1. XOLAIR [Suspect]
     Indication: ASTHMA
     Route: 065
     Dates: start: 20130313
  2. XOLAIR [Suspect]
     Route: 065
     Dates: start: 20130805
  3. XOLAIR [Suspect]
     Route: 065
     Dates: start: 20131204
  4. XOLAIR [Suspect]
     Route: 065
     Dates: start: 20140106
  5. XOLAIR [Suspect]
     Route: 065
     Dates: start: 20140203
  6. CLARITIN [Concomitant]
     Route: 048
  7. SYMBICORT [Concomitant]
     Indication: ASTHMA
     Dosage: 160/4.5
     Route: 065
  8. ZYRTEC [Concomitant]
     Indication: HYPERSENSITIVITY
     Route: 048
  9. VENTOLIN HFA [Concomitant]
     Dosage: PRN FOR RESCUE
     Route: 065
  10. CELEXA (UNITED STATES) [Concomitant]
     Route: 048
     Dates: start: 201206

REACTIONS (8)
  - Pruritus generalised [Unknown]
  - Pruritus [Unknown]
  - Rash macular [Unknown]
  - Chest discomfort [Unknown]
  - Oropharyngeal discomfort [Unknown]
  - Dysphagia [Unknown]
  - Anaphylactoid reaction [Unknown]
  - Peak expiratory flow rate decreased [Unknown]
